FAERS Safety Report 18513253 (Version 4)
Quarter: 2021Q1

REPORT INFORMATION
  Report Type: Spontaneous
  Country: US (occurrence: US)
  Receive Date: 20201117
  Receipt Date: 20210326
  Transmission Date: 20210419
  Serious: Yes (Hospitalization, Other)
  Sender: FDA-Public Use
  Company Number: US-GILEAD-2020-0504315

PATIENT
  Age: 68 Year
  Sex: Male

DRUGS (8)
  1. TOCILIZUMAB. [Suspect]
     Active Substance: TOCILIZUMAB
     Indication: COVID-19
     Dosage: 1 DOSAGE FORM
     Route: 065
     Dates: start: 2020, end: 2020
  2. CEFEPIME [Concomitant]
     Active Substance: CEFEPIME HYDROCHLORIDE
  3. VANCOMYCIN [Concomitant]
     Active Substance: VANCOMYCIN
  4. HYDROXYCHLOROQUINE [Suspect]
     Active Substance: HYDROXYCHLOROQUINE
     Indication: COVID-19
     Dosage: 5 DOSAGE FORM
     Route: 065
     Dates: start: 2020, end: 2020
  5. VEKLURY [Suspect]
     Active Substance: REMDESIVIR
     Indication: COVID-19
     Dosage: UNK
     Route: 042
     Dates: start: 2020, end: 2020
  6. INTERLEUKIN?6 [Suspect]
     Active Substance: INTERLEUKIN NOS
     Indication: COVID-19
     Route: 065
  7. AZITHROMYCIN ANHYDROUS. [Concomitant]
     Active Substance: AZITHROMYCIN ANHYDROUS
  8. OXYGEN. [Concomitant]
     Active Substance: OXYGEN
     Dosage: 4 L

REACTIONS (11)
  - Cytomegalovirus colitis [Unknown]
  - Hypovolaemic shock [Unknown]
  - Cytomegalovirus test positive [Unknown]
  - Gastrointestinal wall thickening [Unknown]
  - Diarrhoea [Unknown]
  - Off label use [Unknown]
  - Large intestinal ulcer [Unknown]
  - Cytomegalovirus enterocolitis [Unknown]
  - Cytomegalovirus viraemia [Unknown]
  - Intentional product use issue [Unknown]
  - Blood immunoglobulin G increased [Unknown]

NARRATIVE: CASE EVENT DATE: 2020
